FAERS Safety Report 4360325-5 (Version None)
Quarter: 2004Q2

REPORT INFORMATION
  Report Type: 
  Country: None (occurrence: None)
  Receive Date: 20040514
  Receipt Date: 20040504
  Transmission Date: 20050107
  Serious: Yes (Hospitalization)
  Sender: FDA-Public Use
  Company Number: K200400683

PATIENT
  Age: 90 Year
  Sex: Male

DRUGS (11)
  1. ALTACE [Suspect]
     Dosage: 2.5 MG, BID, ORAL
     Route: 048
     Dates: end: 20040321
  2. ASPEGIC 1000 [Suspect]
     Dosage: 250 MG, QD, ORAL
     Route: 048
     Dates: end: 20040321
  3. LASIX [Concomitant]
  4. AMIODARONE HCL [Concomitant]
  5. PREDNISONE TAB [Concomitant]
  6. AMLODIPINE BESYLATE [Concomitant]
  7. OMEPRAZOLE [Concomitant]
  8. DIGOXIN [Concomitant]
  9. STILNOX (ZOLPIDEM) [Concomitant]
  10. VITAMIN B1 TAB [Concomitant]
  11. VITAMIN B6 [Concomitant]

REACTIONS (11)
  - AORTIC CALCIFICATION [None]
  - ASTHENIA [None]
  - BLOOD CREATININE INCREASED [None]
  - BONE PAIN [None]
  - CARDIOMEGALY [None]
  - FACIAL PALSY [None]
  - FALL [None]
  - HYPERKALAEMIA [None]
  - LUMBAR VERTEBRA INJURY [None]
  - MICROCYTIC ANAEMIA [None]
  - MITRAL VALVE STENOSIS [None]
